FAERS Safety Report 13913540 (Version 1)
Quarter: 2017Q3

REPORT INFORMATION
  Report Type: Spontaneous
  Country: US (occurrence: US)
  Receive Date: 20170828
  Receipt Date: 20170828
  Transmission Date: 20171127
  Serious: No
  Sender: FDA-Public Use
  Company Number: US-ROCHE-1137596

PATIENT
  Sex: Female

DRUGS (3)
  1. BOTOX [Concomitant]
     Active Substance: ONABOTULINUMTOXINA
     Route: 065
  2. NUTROPIN AQ [Suspect]
     Active Substance: SOMATROPIN
     Indication: SEPTO-OPTIC DYSPLASIA
  3. NUTROPIN AQ [Suspect]
     Active Substance: SOMATROPIN
     Indication: GROWTH HORMONE DEFICIENCY
     Dosage: 0.12 CC
     Route: 058

REACTIONS (3)
  - Drug dose omission [Unknown]
  - Injection site bruising [Unknown]
  - Nasopharyngitis [Unknown]
